FAERS Safety Report 7943941-0 (Version None)
Quarter: 2011Q4

REPORT INFORMATION
  Report Type: 
  Country: None (occurrence: None)
  Receive Date: 20111128
  Receipt Date: 20111116
  Transmission Date: 20120403
  Serious: Yes (Hospitalization)
  Sender: FDA-Public Use
  Company Number: BE-ROCHE-1014295

PATIENT
  Sex: Male
  Weight: 93 kg

DRUGS (4)
  1. ASAFLOW [Concomitant]
     Indication: THROMBOSIS PROPHYLAXIS
     Route: 048
     Dates: start: 20030715, end: 20100924
  2. TAMSULOSIN HCL [Concomitant]
     Indication: BENIGN PROSTATIC HYPERPLASIA
     Dosage: BISOPROLOL 10MG, HYDROCHLOROTHIAZIDE 25MG
     Route: 048
     Dates: start: 20100910
  3. XELODA [Suspect]
     Indication: RECTAL CANCER
     Route: 048
     Dates: start: 20101004
  4. EMCORETIC [Concomitant]
     Indication: HYPERTENSION
     Route: 048
     Dates: start: 20101029

REACTIONS (5)
  - ATRIAL FIBRILLATION [None]
  - PELVIC ABSCESS [None]
  - WOUND DEHISCENCE [None]
  - ACUTE PULMONARY OEDEMA [None]
  - MYOCARDIAL ISCHAEMIA [None]
